FAERS Safety Report 22071169 (Version 2)
Quarter: 2023Q2

REPORT INFORMATION
  Report Type: Spontaneous
  Country: US (occurrence: US)
  Receive Date: 20230307
  Receipt Date: 20230410
  Transmission Date: 20230722
  Serious: Yes (Other)
  Sender: FDA-Public Use
  Company Number: US-PFIZER INC-PV202300042505

PATIENT
  Age: 35 Year
  Sex: Female

DRUGS (1)
  1. XELJANZ XR [Suspect]
     Active Substance: TOFACITINIB CITRATE
     Dosage: UNK

REACTIONS (7)
  - Accident at home [Unknown]
  - Limb injury [Unknown]
  - Drug ineffective [Unknown]
  - Influenza [Unknown]
  - Infection [Unknown]
  - Nasopharyngitis [Unknown]
  - Ovarian cyst [Unknown]
